FAERS Safety Report 8328380-5 (Version None)
Quarter: 2012Q2

REPORT INFORMATION
  Report Type: 
  Country: None (occurrence: None)
  Receive Date: 20120502
  Receipt Date: 20100701
  Transmission Date: 20120825
  Serious: No
  Sender: FDA-Public Use
  Company Number: US-TEVA-2010003576

PATIENT
  Sex: Female
  Weight: 83.99 kg

DRUGS (5)
  1. AMLODIPINE [Concomitant]
     Dates: start: 20040101
  2. NUVIGIL [Suspect]
     Indication: MULTIPLE SCLEROSIS
     Route: 048
     Dates: start: 20080101
  3. PRAVASTATIN [Concomitant]
     Dates: start: 20040101
  4. PROVIGIL [Suspect]
     Indication: MULTIPLE SCLEROSIS
     Route: 048
  5. VALIUM [Concomitant]

REACTIONS (2)
  - ABDOMINAL DISCOMFORT [None]
  - DECREASED APPETITE [None]
